FAERS Safety Report 8496740-8 (Version None)
Quarter: 2012Q3

REPORT INFORMATION
  Report Type: 
  Country: None (occurrence: None)
  Receive Date: 20120709
  Receipt Date: 20120625
  Transmission Date: 20120928
  Serious: Yes (Other)
  Sender: FDA-Public Use
  Company Number: JP-ROCHE-1083228

PATIENT
  Sex: Female

DRUGS (15)
  1. ACTEMRA [Suspect]
     Route: 041
     Dates: start: 20090709, end: 20090709
  2. ACTEMRA [Suspect]
     Indication: RHEUMATOID ARTHRITIS
     Route: 041
     Dates: start: 20090108, end: 20090212
  3. ACTEMRA [Suspect]
     Route: 041
     Dates: start: 20090806, end: 20090910
  4. ACTEMRA [Suspect]
     Route: 041
     Dates: start: 20100319
  5. PREDNISOLONE [Concomitant]
     Indication: RHEUMATOID ARTHRITIS
     Route: 048
     Dates: start: 20080707
  6. MOBIC [Concomitant]
     Indication: RHEUMATOID ARTHRITIS
     Route: 048
  7. ACTEMRA [Suspect]
     Route: 041
     Dates: start: 20100217, end: 20100217
  8. ISALON [Concomitant]
     Route: 048
     Dates: start: 20080707
  9. ACTEMRA [Suspect]
     Route: 041
     Dates: start: 20091009, end: 20100120
  10. MECOBALAMIN [Concomitant]
     Route: 048
     Dates: start: 20081023
  11. ACTEMRA [Suspect]
     Route: 041
     Dates: start: 20090212, end: 20090212
  12. ACTEMRA [Suspect]
     Route: 041
     Dates: start: 20090312, end: 20090507
  13. ACTEMRA [Suspect]
     Route: 041
     Dates: start: 20090611, end: 20090611
  14. METHOTREXATE SODIUM [Suspect]
     Indication: RHEUMATOID ARTHRITIS
     Route: 048
     Dates: start: 20080925
  15. ISONIAZID [Concomitant]
     Indication: PROPHYLAXIS
     Route: 048
     Dates: start: 20081217

REACTIONS (1)
  - CELL MARKER INCREASED [None]
